FAERS Safety Report 18445130 (Version 1)
Quarter: 2020Q4

REPORT INFORMATION
  Report Type: Spontaneous
  Country: US (occurrence: US)
  Receive Date: 20201030
  Receipt Date: 20201030
  Transmission Date: 20210114
  Serious: No
  Sender: FDA-Public Use
  Company Number: US-CADILA HEALTHCARE LIMITED-US-ZYDUS-051803

PATIENT
  Sex: Female

DRUGS (1)
  1. CARVEDILOL 3.125 MILLIGRAM TABLET [Suspect]
     Active Substance: CARVEDILOL
     Indication: HYPERTENSION

REACTIONS (1)
  - Adverse event [Recovered/Resolved]
